FAERS Safety Report 10982109 (Version 3)
Quarter: 2015Q2

REPORT INFORMATION
  Report Type: Report from Study
  Country: JP (occurrence: JP)
  Receive Date: 20150403
  Receipt Date: 20150610
  Transmission Date: 20150821
  Serious: Yes (Other)
  Sender: FDA-Public Use
  Company Number: JP-PFIZER INC-2015112259

PATIENT
  Age: 67 Year
  Sex: Male
  Weight: 46 kg

DRUGS (6)
  1. NICARDIPINE [Concomitant]
     Active Substance: NICARDIPINE
     Indication: SUBARACHNOID HAEMORRHAGE
     Dosage: 60 MG, DAILY
     Dates: start: 20141225, end: 20141226
  2. FOSPHENYTOIN SODIUM. [Suspect]
     Active Substance: FOSPHENYTOIN SODIUM
     Indication: CONVULSION PROPHYLAXIS
     Dosage: 15MG/KG 12.5MG/MIN WITH 0.9% PHYSIOLOGICAL SALINE/ 5% GLUCOSE INJECTION (DILUTION RATIO 1:11)
     Dates: start: 20141226
  3. MIDAZOLAM [Concomitant]
     Active Substance: MIDAZOLAM\MIDAZOLAM HYDROCHLORIDE
     Indication: ANAESTHESIA
     Dosage: 100 MG, DAILY
     Dates: start: 20141225, end: 20141226
  4. CEFAZOLIN [Concomitant]
     Active Substance: CEFAZOLIN
     Indication: PROPHYLAXIS
     Dosage: 2 G, DAILY
     Dates: start: 20141226
  5. FAMOTIDINE. [Concomitant]
     Active Substance: FAMOTIDINE
     Indication: PROPHYLAXIS
     Dosage: 40 MG, DAILY
     Dates: start: 20141225
  6. PRECEDEX [Concomitant]
     Active Substance: DEXMEDETOMIDINE HYDROCHLORIDE
     Indication: SEDATIVE THERAPY
     Dosage: 500 ?G/DAY
     Dates: start: 20141226, end: 20141227

REACTIONS (1)
  - Delirium [Recovering/Resolving]

NARRATIVE: CASE EVENT DATE: 20141227
